FAERS Safety Report 6759309-9 (Version None)
Quarter: 2010Q2

REPORT INFORMATION
  Report Type: 
  Country: None (occurrence: None)
  Receive Date: 20100607
  Receipt Date: 20100531
  Transmission Date: 20101027
  Serious: Yes (Hospitalization)
  Sender: FDA-Public Use
  Company Number: FR-PFIZER INC-2010068283

PATIENT
  Age: 46 Year
  Sex: Female

DRUGS (9)
  1. XANAX [Suspect]
     Dosage: 0.5 MG, 3X/DAY
     Route: 048
     Dates: start: 20100409
  2. LEPTICUR [Interacting]
     Dosage: 10 MG, 6/DAY
     Route: 048
     Dates: end: 20100414
  3. LEPTICUR [Interacting]
     Dosage: 10 MG, 3X/DAY
     Route: 048
     Dates: start: 20100416
  4. CYMBALTA [Interacting]
     Indication: BIPOLAR DISORDER
     Dosage: 60 MG, 1X/DAY
     Route: 048
     Dates: end: 20100414
  5. ATARAX [Interacting]
     Dosage: 50 MG, 1X/DAY
     Route: 048
     Dates: end: 20100414
  6. LOXAPAC [Interacting]
     Indication: BIPOLAR DISORDER
     Dosage: UNK
     Route: 030
     Dates: start: 20100413, end: 20100413
  7. CLOPIXOL - SLOW RELEASE [Interacting]
     Indication: BIPOLAR DISORDER
     Dosage: 300 MG, EVERY 2 WEEKS
     Route: 030
  8. DEPAMIDE [Concomitant]
     Dosage: 300 MG, 2X/DAY
  9. SULFARLEM [Concomitant]

REACTIONS (4)
  - DRUG INTERACTION [None]
  - PYREXIA [None]
  - TACHYCARDIA [None]
  - TREMOR [None]
